FAERS Safety Report 8188420-3 (Version None)
Quarter: 2012Q1

REPORT INFORMATION
  Report Type: 
  Country: None (occurrence: None)
  Receive Date: 20120306
  Receipt Date: 20120224
  Transmission Date: 20120608
  Serious: Yes (Hospitalization, Other)
  Sender: FDA-Public Use
  Company Number: PHHY2012DE016509

PATIENT
  Sex: Female
  Weight: 66 kg

DRUGS (11)
  1. ANTIDEPRESSANTS [Concomitant]
  2. BETA BLOCKING AGENTS [Concomitant]
  3. RASILEZ [Suspect]
     Indication: HYPERTENSION
     Dosage: 150 MG/DAY
     Route: 048
     Dates: start: 20081016
  4. ACE INHIBITOR NOS [Concomitant]
  5. ANTIHYPERTENSIVE DRUGS [Concomitant]
  6. INSULIN [Concomitant]
     Indication: DIABETES MELLITUS
  7. DIURETICS [Concomitant]
  8. PLATELET AGGREGATION INHIBITORS [Concomitant]
  9. CALCIUM CHANNEL BLOCKERS [Concomitant]
  10. NITRATES [Concomitant]
  11. HMG COA REDUCTASE INHIBITORS (STATINS) [Concomitant]

REACTIONS (2)
  - CEREBROVASCULAR ACCIDENT [None]
  - BLOOD PRESSURE SYSTOLIC INCREASED [None]
